FAERS Safety Report 5232247-9 (Version None)
Quarter: 2007Q1

REPORT INFORMATION
  Report Type: 
  Country: None (occurrence: None)
  Receive Date: 20070207
  Receipt Date: 20070129
  Transmission Date: 20070707
  Serious: Yes (Other)
  Sender: FDA-Public Use
  Company Number: US-BAYER-200710319BCC

PATIENT
  Age: 82 Year
  Sex: Female
  Weight: 81 kg

DRUGS (10)
  1. ALEVE [Suspect]
     Indication: ARTHRALGIA
     Dosage: TOTAL DAILY DOSE: 440 MG  UNIT DOSE: 220 MG
     Route: 048
  2. ASPIRIN [Suspect]
     Indication: CARDIOVASCULAR EVENT PROPHYLAXIS
     Dosage: AS USED: 81 MG  UNIT DOSE: 81 MG
     Route: 048
  3. WATER PILL [Concomitant]
  4. LIPITOR [Concomitant]
  5. GLIPIZIDE [Concomitant]
  6. HYDRALAZINE HCL [Concomitant]
  7. SYNTHROID [Concomitant]
  8. METOLAZONE [Concomitant]
  9. ALLOPURINOL SODIUM [Concomitant]
  10. MICARDIS [Concomitant]

REACTIONS (1)
  - RENAL FAILURE [None]
